FAERS Safety Report 16773710 (Version 1)
Quarter: 2019Q4

REPORT INFORMATION
  Report Type: Spontaneous
  Country: US (occurrence: US)
  Receive Date: 20190904
  Receipt Date: 20190904
  Transmission Date: 20200122
  Serious: Yes (Other)
  Sender: FDA-Public Use
  Company Number: None

PATIENT
  Age: 53 Year
  Sex: Male
  Weight: 123 kg

DRUGS (1)
  1. GIAPREZA [Suspect]
     Active Substance: ANGIOTENSIN II
     Indication: SEPTIC SHOCK
     Dosage: ?          OTHER FREQUENCY:CIVI;?
     Route: 041
     Dates: start: 20190815, end: 20190815

REACTIONS (3)
  - Gastrointestinal haemorrhage [None]
  - Deep vein thrombosis postoperative [None]
  - Deep vein thrombosis [None]

NARRATIVE: CASE EVENT DATE: 20190817
